FAERS Safety Report 22177214 (Version 7)
Quarter: 2025Q2

REPORT INFORMATION
  Report Type: Report from Study
  Country: US (occurrence: US)
  Receive Date: 20230405
  Receipt Date: 20250623
  Transmission Date: 20250716
  Serious: Yes (Hospitalization, Other)
  Sender: TAKEDA
  Company Number: US-TAKEDA-2023TUS023907

PATIENT
  Age: 64 Year
  Sex: Female

DRUGS (5)
  1. TEDUGLUTIDE [Suspect]
     Active Substance: TEDUGLUTIDE
     Indication: Short-bowel syndrome
     Dosage: 0.15 MILLILITER, QD
     Dates: start: 20230211
  2. TEDUGLUTIDE [Suspect]
     Active Substance: TEDUGLUTIDE
     Dosage: 1.5 MILLIGRAM, QD
     Dates: start: 20230215
  3. TEDUGLUTIDE [Suspect]
     Active Substance: TEDUGLUTIDE
     Dosage: 0.15 MILLILITER, QD
     Dates: start: 202302
  4. TEDUGLUTIDE [Suspect]
     Active Substance: TEDUGLUTIDE
  5. SYNTHROID [Suspect]
     Active Substance: LEVOTHYROXINE SODIUM
     Indication: Product used for unknown indication

REACTIONS (13)
  - Kidney infection [Unknown]
  - Hyperthyroidism [Unknown]
  - Cellulitis [Unknown]
  - Urinary tract infection [Unknown]
  - Weight decreased [Unknown]
  - COVID-19 [Unknown]
  - Injection site bruising [Unknown]
  - Asthenia [Unknown]
  - Fatigue [Unknown]
  - Blood selenium decreased [Unknown]
  - Abdominal distension [Unknown]
  - Nausea [Unknown]
  - Decreased appetite [Unknown]

NARRATIVE: CASE EVENT DATE: 20231202
